FAERS Safety Report 4660990-9 (Version None)
Quarter: 2005Q2

REPORT INFORMATION
  Report Type: 
  Country: None (occurrence: None)
  Receive Date: 20050511
  Receipt Date: 20050430
  Transmission Date: 20051028
  Serious: Yes (Hospitalization, Congenital Anomaly, Other)
  Sender: FDA-Public Use
  Company Number: 2005045777

PATIENT
  Age: 72 Year
  Sex: Female
  Weight: 77.1115 kg

DRUGS (25)
  1. NEURONTIN [Suspect]
     Indication: NEURALGIA
     Dosage: 300 MG (100 MG, 3 IN 1 D)
  2. AMLODIPINE BESYLATE [Concomitant]
  3. VALSARTAN [Concomitant]
  4. CARBAMAZEPINE [Concomitant]
  5. LEVOTHYROXINE SODIUM [Concomitant]
  6. LANSOPRAZOLE [Concomitant]
  7. MONTELUKAST SODIUM (MONTELUKAST SODIUM) [Concomitant]
  8. CLINDAMYCIN [Concomitant]
  9. HYDROCODONE BITARTRATE [Concomitant]
  10. SERETIDE MITE (FLUTICASONE PROPIONATE, SALMETEROL XINAFOATE) [Concomitant]
  11. COMBIVENT [Concomitant]
  12. OXYCODONE HCL [Concomitant]
  13. CYCLOBENZAPRINE HCL [Concomitant]
  14. RISEDRONATE SODIUM (RISEDRONATE SODIUM) [Concomitant]
  15. TOLTERODINE TARTRATE [Concomitant]
  16. VICODIN [Concomitant]
  17. SELENIUM (SELENIUM) [Concomitant]
  18. ASCORBIC ACID [Concomitant]
  19. MULTIVITAMINS (ASCORBIC ACID/ERGOCALCIFEROL/FOLIC ACID/NICOTINAMIDE/PA [Concomitant]
  20. CALCIUM CITRATE (CALCIUM CITRATE) [Concomitant]
  21. BECOSYM FORTE (NICOTINAMIDE, PYRIDOXINE HYDROCHLORIDE, RIBOFLAVIN, THI [Concomitant]
  22. CETIRIZINE HCL [Concomitant]
  23. MOMETASONE FUROATE [Concomitant]
  24. TOLTERODINE TARTRATE [Concomitant]
  25. PROCTOFOAM HC (HYDROCORTISONE ACETATE, PRAMOCAINE HYDROCHLORIDE) [Concomitant]

REACTIONS (16)
  - ANKLE FRACTURE [None]
  - BACK PAIN [None]
  - CATARACT [None]
  - EYE LASER SURGERY [None]
  - FEELING ABNORMAL [None]
  - HAND DEFORMITY [None]
  - HERPES ZOSTER [None]
  - INTESTINAL OBSTRUCTION [None]
  - JOINT RANGE OF MOTION DECREASED [None]
  - LIGAMENT INJURY [None]
  - PAIN IN EXTREMITY [None]
  - PHARMACEUTICAL PRODUCT COMPLAINT [None]
  - POST LAMINECTOMY SYNDROME [None]
  - SCOLIOSIS [None]
  - SPINAL COMPRESSION FRACTURE [None]
  - VERTEBROPLASTY [None]
